FAERS Safety Report 19628284 (Version 1)
Quarter: 2021Q3

REPORT INFORMATION
  Report Type: Other
  Country: US (occurrence: US)
  Receive Date: 20210729
  Receipt Date: 20210729
  Transmission Date: 20211014
  Serious: Yes (Other)
  Sender: FDA-Public Use
  Company Number: US-ROCHE-2876579

PATIENT
  Sex: Male

DRUGS (20)
  1. FLOMAX [Concomitant]
     Active Substance: TAMSULOSIN HYDROCHLORIDE
     Indication: PRODUCT USED FOR UNKNOWN INDICATION
     Route: 048
  2. BETAPACE [Concomitant]
     Active Substance: SOTALOL HYDROCHLORIDE
     Indication: PRODUCT USED FOR UNKNOWN INDICATION
     Route: 048
  3. ESBRIET [Suspect]
     Active Substance: PIRFENIDONE
     Indication: BRONCHITIS CHRONIC
     Dosage: TAKE 2 TABLETS BY MOUTH 3 TIMES A DAY WITH MEALS FOR 7 DAYS.
     Route: 048
  4. OXYCODONE AND ACETAMINOPHEN [Concomitant]
     Active Substance: ACETAMINOPHEN\OXYCODONE HYDROCHLORIDE
     Indication: PAIN
     Dosage: TAKE 1 TABLET EVERY 4 TO 6 HOURS AS NEEDED?5?325 MG
     Route: 048
  5. ANORO ELLIPTA [Concomitant]
     Active Substance: UMECLIDINIUM BROMIDE\VILANTEROL TRIFENATATE
     Indication: CHRONIC OBSTRUCTIVE PULMONARY DISEASE
     Dosage: INHALE 1 PUFF BY MOUTH DAILY?62.5?25 MCG/INH INHALATION AEROSOL POWDER BREATH ACTIVATED
     Dates: start: 20181207
  6. PREDNISONE. [Concomitant]
     Active Substance: PREDNISONE
     Dosage: TAKE AS DIRECTED
     Route: 048
     Dates: start: 20210113
  7. ELIQUIS [Concomitant]
     Active Substance: APIXABAN
     Indication: PULMONARY EMBOLISM
     Route: 048
  8. LASIX [Concomitant]
     Active Substance: FUROSEMIDE
     Indication: PRODUCT USED FOR UNKNOWN INDICATION
     Route: 048
  9. LIPITOR [Concomitant]
     Active Substance: ATORVASTATIN CALCIUM
     Route: 048
  10. OXYGEN. [Concomitant]
     Active Substance: OXYGEN
     Indication: CHRONIC RESPIRATORY FAILURE
     Dosage: 1L W/REST AND HS, 4IPM WITH EXERTION
  11. FLONASE [Concomitant]
     Active Substance: FLUTICASONE PROPIONATE
     Dosage: 50 MCG/ACT SUSPENSION?INSTILL 2 SQUIRT PRN
  12. LUMIGAN [Concomitant]
     Active Substance: BIMATOPROST
     Indication: PRODUCT USED FOR UNKNOWN INDICATION
     Dosage: SOLUTION
  13. NITROGLYCERIN LINGUAL [Concomitant]
     Active Substance: NITROGLYCERIN
     Indication: CHEST PAIN
     Dosage: DISSOLVE 1 TABLET UNDER THE TONGUE AS NEEDED.
     Route: 060
  14. ESBRIET [Suspect]
     Active Substance: PIRFENIDONE
     Indication: PULMONARY FIBROSIS
     Dosage: TAKE 1 TABLET BY MOUTH 3 TIMES A DAY WITH MEALS FOR 7 DAYS
     Route: 048
     Dates: start: 20210504
  15. OXYGEN. [Concomitant]
     Active Substance: OXYGEN
     Indication: CHRONIC OBSTRUCTIVE PULMONARY DISEASE
  16. ESBRIET [Suspect]
     Active Substance: PIRFENIDONE
     Indication: CHRONIC OBSTRUCTIVE PULMONARY DISEASE
     Dosage: TAKE 3 TABLETS BY MOUTH 3 TIMES A DAY WITH MEALS THEREAFTER
     Route: 048
  17. GAVISCON EXTRA STRENGTH [Concomitant]
     Active Substance: ALUMINUM HYDROXIDE\MAGNESIUM CARBONATE
     Indication: PRODUCT USED FOR UNKNOWN INDICATION
     Dosage: 160?105 MG CHEWABLE, 2 TABLETS AS NEEDED TO BE TAKEN.
     Route: 048
  18. OXYGEN. [Concomitant]
     Active Substance: OXYGEN
     Indication: HYPOXIA
  19. ALBUTEROL SULFATE. [Concomitant]
     Active Substance: ALBUTEROL SULFATE
     Dosage: 1 UNIT DOSE IN NEBULIZER EVERY 4 HOURS AS NEEDED
  20. VENTOLIN HFA [Concomitant]
     Active Substance: ALBUTEROL SULFATE
     Indication: PRODUCT USED FOR UNKNOWN INDICATION
     Dosage: INHALE 1 TO 2 PUFFS EVERY 4?6 HOURS AS NEEDED.?106 (90) BASE MCG/ACT INHAL;ATION AEROSOL SOLUTION
     Route: 045
     Dates: start: 20210113

REACTIONS (1)
  - Cardiac failure congestive [Unknown]
